FAERS Safety Report 15074641 (Version 1)
Quarter: 2018Q2

REPORT INFORMATION
  Report Type: Spontaneous
  Country: US (occurrence: US)
  Receive Date: 20180627
  Receipt Date: 20180627
  Transmission Date: 20180711
  Serious: No
  Sender: FDA-Public Use
  Company Number: US-SAOL THERAPEUTICS-2018SAO00545

PATIENT
  Sex: Male
  Weight: 44.3 kg

DRUGS (2)
  1. BACLOFEN. [Suspect]
     Active Substance: BACLOFEN
     Indication: CEREBRAL PALSY
  2. BACLOFEN. [Suspect]
     Active Substance: BACLOFEN
     Indication: MUSCLE SPASTICITY
     Dosage: 155.2 ?G, \DAY
     Route: 037

REACTIONS (3)
  - Product use in unapproved indication [Unknown]
  - Complication associated with device [Not Recovered/Not Resolved]
  - Back pain [Recovering/Resolving]
